FAERS Safety Report 12537797 (Version 1)
Quarter: 2016Q3

REPORT INFORMATION
  Report Type: Spontaneous
  Country: CH (occurrence: CH)
  Receive Date: 20160707
  Receipt Date: 20160707
  Transmission Date: 20161109
  Serious: Yes (Other)
  Sender: FDA-Public Use
  Company Number: CH-SAOL THERAPEUTICS-2016SAO00063

PATIENT
  Sex: Male

DRUGS (1)
  1. LIORESAL [Suspect]
     Active Substance: BACLOFEN
     Dosage: 25 ?G, \DAY
     Route: 037

REACTIONS (3)
  - Device issue [None]
  - Muscle spasticity [Unknown]
  - Device kink [Unknown]

NARRATIVE: CASE EVENT DATE: 20160527
